FAERS Safety Report 10398083 (Version 1)
Quarter: 2014Q3

REPORT INFORMATION
  Report Type: Spontaneous
  Country: US (occurrence: None)
  Receive Date: 20140818
  Receipt Date: 20140818
  Transmission Date: 20150326
  Serious: Yes (Hospitalization)
  Sender: FDA-Public Use
  Company Number: None

PATIENT
  Age: 33 Year
  Sex: Male

DRUGS (43)
  1. NOVOLOG [Concomitant]
     Active Substance: INSULIN ASPART
  2. FIORICET [Concomitant]
     Active Substance: ACETAMINOPHEN\BUTALBITAL\CAFFEINE
  3. VANCOMYCIN [Concomitant]
     Active Substance: VANCOMYCIN
  4. SOFOSBUVIR 400 MG [Suspect]
     Active Substance: SOFOSBUVIR
     Indication: HEPATITIS C
     Route: 048
     Dates: start: 20140224, end: 20140519
  5. ZOVIRAX [Concomitant]
     Active Substance: ACYCLOVIR
  6. LIPITOR [Concomitant]
     Active Substance: ATORVASTATIN CALCIUM
  7. OMEGA 3 [Concomitant]
     Active Substance: OMEGA-3 FATTY ACIDS
  8. K-PHOS NEUTRAL [Concomitant]
     Active Substance: POTASSIUM PHOSPHATE\SODIUM PHOSPHATE
  9. MIRAPEX [Concomitant]
     Active Substance: PRAMIPEXOLE DIHYDROCHLORIDE
  10. KENALOG [Concomitant]
     Active Substance: TRIAMCINOLONE ACETONIDE
  11. GENTAMICIN [Concomitant]
     Active Substance: GENTAMICIN
  12. NEURONTIN [Concomitant]
     Active Substance: GABAPENTIN
  13. ZOLOFT [Concomitant]
     Active Substance: SERTRALINE HYDROCHLORIDE
  14. REMERON [Concomitant]
     Active Substance: MIRTAZAPINE
  15. IMITREX [Concomitant]
     Active Substance: SUMATRIPTAN\SUMATRIPTAN SUCCINATE
  16. PROGRAF [Concomitant]
     Active Substance: TACROLIMUS\TACROLIMUS ANHYDROUS
  17. ACTIGALL [Concomitant]
     Active Substance: URSODIOL
  18. ZOSYN [Concomitant]
     Active Substance: PIPERACILLIN SODIUM\TAZOBACTAM SODIUM
  19. WELLBUTRIN SR [Concomitant]
     Active Substance: BUPROPION HYDROCHLORIDE
  20. CAPHOSOL [Concomitant]
  21. SIMEPREVIR [Suspect]
     Active Substance: SIMEPREVIR
     Indication: HEPATITIS C
     Dosage: 150 1X DAILY PO
     Route: 048
     Dates: start: 20140224, end: 20140519
  22. RESTASIS [Concomitant]
     Active Substance: CYCLOSPORINE
  23. PEPCID [Concomitant]
     Active Substance: FAMOTIDINE
  24. MG-PG PROTEIN [Concomitant]
  25. ZOFRAN ODT [Concomitant]
     Active Substance: ONDANSETRON HYDROCHLORIDE
  26. DELTASONE [Concomitant]
     Active Substance: PREDNISONE
  27. ROXICODONE [Concomitant]
     Active Substance: OXYCODONE HYDROCHLORIDE
  28. CARAFATE [Concomitant]
     Active Substance: SUCRALFATE
  29. TYLENOL [Concomitant]
     Active Substance: ACETAMINOPHEN
  30. LANTUS [Concomitant]
     Active Substance: INSULIN GLARGINE
  31. MIRALAX [Concomitant]
     Active Substance: POLYETHYLENE GLYCOL 3350
  32. SEROQUEL [Concomitant]
     Active Substance: QUETIAPINE FUMARATE
  33. DILAUDID [Concomitant]
     Active Substance: HYDROMORPHONE HYDROCHLORIDE
  34. IBUPROFEN. [Concomitant]
     Active Substance: IBUPROFEN
  35. ROCEPHIN [Concomitant]
     Active Substance: CEFTRIAXONE SODIUM
  36. FLOMAX [Concomitant]
     Active Substance: TAMSULOSIN HYDROCHLORIDE
  37. DAPSONE. [Concomitant]
     Active Substance: DAPSONE
  38. MULTIVITAMIN TABS [Concomitant]
  39. GLUCOPHAGE [Concomitant]
     Active Substance: METFORMIN HYDROCHLORIDE
  40. VEETID [Concomitant]
  41. AMBIEN [Concomitant]
     Active Substance: ZOLPIDEM TARTRATE
  42. MORPHINE [Concomitant]
     Active Substance: MORPHINE
  43. MEROPENUM [Concomitant]
     Active Substance: MEROPENEM

REACTIONS (7)
  - Groin pain [None]
  - Back pain [None]
  - Chest pain [None]
  - Dysuria [None]
  - Pain in extremity [None]
  - Klebsiella sepsis [None]
  - Musculoskeletal pain [None]

NARRATIVE: CASE EVENT DATE: 20140507
